FAERS Safety Report 10602257 (Version 1)
Quarter: 2014Q4

REPORT INFORMATION
  Report Type: Spontaneous
  Country: JP (occurrence: None)
  Receive Date: 20141120
  Receipt Date: 20141120
  Transmission Date: 20150529
  Serious: Yes (Other)
  Sender: FDA-Public Use
  Company Number: 2014/077

PATIENT
  Age: 29 Year
  Sex: Female

DRUGS (2)
  1. LEVETIRACETAM (NO PREF. NAME) [Suspect]
     Active Substance: LEVETIRACETAM
     Indication: GENERALISED TONIC-CLONIC SEIZURE
  2. SODIUM VALPROATE [Concomitant]
     Active Substance: VALPROATE SODIUM

REACTIONS (3)
  - Rhabdomyolysis [None]
  - Generalised tonic-clonic seizure [None]
  - Altered state of consciousness [None]
